FAERS Safety Report 10248264 (Version 1)
Quarter: 2014Q2

REPORT INFORMATION
  Report Type: Spontaneous
  Country: ES (occurrence: ES)
  Receive Date: 20140620
  Receipt Date: 20140620
  Transmission Date: 20141212
  Serious: Yes (Other)
  Sender: FDA-Public Use
  Company Number: ES-UCBSA-2014001897

PATIENT
  Age: 86 Year
  Sex: Female

DRUGS (6)
  1. NEUPRO [Suspect]
     Dosage: 8 MG, ONCE DAILY (QD)
     Route: 062
     Dates: start: 2014, end: 20140521
  2. LORNOXICAM [Concomitant]
     Dosage: UNK
     Route: 048
  3. MIRTAZAPINA [Concomitant]
     Dosage: UNK
     Route: 048
  4. ALPRAZOLAM [Concomitant]
     Dosage: UNK
     Route: 048
  5. OMEPRAZOL [Concomitant]
     Dosage: UNK
     Route: 048
  6. ALENDRONATO SODICO [Concomitant]
     Dosage: UNK
     Route: 048

REACTIONS (1)
  - Loss of consciousness [Recovered/Resolved]
